FAERS Safety Report 7944180-X (Version None)
Quarter: 2011Q4

REPORT INFORMATION
  Report Type: 
  Country: None (occurrence: None)
  Receive Date: 20111129
  Receipt Date: 20111117
  Transmission Date: 20120403
  Serious: Yes (Hospitalization)
  Sender: FDA-Public Use
  Company Number: US-BIOGENIDEC-2011BI040887

PATIENT
  Age: 56 Year
  Sex: Male

DRUGS (1)
  1. TYSABRI [Suspect]
     Indication: MULTIPLE SCLEROSIS
     Route: 042
     Dates: start: 20110801, end: 20111117

REACTIONS (5)
  - VERTEBRAL FORAMINAL STENOSIS [None]
  - SCIATICA [None]
  - BLOOD GLUCOSE INCREASED [None]
  - DYSPNOEA [None]
  - CEREBROVASCULAR ACCIDENT [None]
